FAERS Safety Report 9863914 (Version 2)
Quarter: 2014Q1

REPORT INFORMATION
  Report Type: Spontaneous
  Country: JP (occurrence: JP)
  Receive Date: 20140203
  Receipt Date: 20140319
  Transmission Date: 20141002
  Serious: Yes (Hospitalization)
  Sender: FDA-Public Use
  Company Number: JP-TAKEDA-2014TEU000883

PATIENT
  Age: 85 Year
  Sex: Female

DRUGS (6)
  1. TACHOSIL [Suspect]
     Indication: PROPHYLAXIS
     Dosage: 1 SHEET OF REGULAR SIZE /1DAY
     Dates: start: 20130708
  2. BOLHEAL [Concomitant]
     Indication: AORTIC VALVE STENOSIS
     Dosage: 5 ML, 1/1DAY, PRN
     Dates: start: 20130708
  3. BAYASPIRIN [Concomitant]
     Indication: AORTIC VALVE STENOSIS
     Dosage: 100 MG, QD
     Dates: start: 20130710
  4. CEFAMEZIN ALPHA [Concomitant]
     Indication: AORTIC VALVE STENOSIS
     Dosage: 1 G, BID
     Dates: start: 20130708, end: 20130709
  5. PLATELETS, CONCENTRATED [Concomitant]
  6. PLASMA [Concomitant]

REACTIONS (3)
  - Decreased appetite [Recovering/Resolving]
  - Atrial fibrillation [Recovering/Resolving]
  - Toxic skin eruption [Recovering/Resolving]
